FAERS Safety Report 24246820 (Version 1)
Quarter: 2024Q3

REPORT INFORMATION
  Report Type: Spontaneous
  Country: JP (occurrence: JP)
  Receive Date: 20240826
  Receipt Date: 20240826
  Transmission Date: 20241016
  Serious: Yes (Hospitalization, Other)
  Sender: NOVITIUM PHARMA
  Company Number: JP-NOVITIUMPHARMA-2024JPNVP01681

PATIENT
  Age: 36 Year
  Sex: Female

DRUGS (4)
  1. ACYCLOVIR [Suspect]
     Active Substance: ACYCLOVIR
     Indication: Varicella zoster virus infection
     Dosage: IV INFUSION
     Route: 042
  2. PREDNISONE [Concomitant]
     Active Substance: PREDNISONE
     Indication: Varicella zoster virus infection
     Dosage: PULSE THERAPY
  3. CLOPIDOGREL [Concomitant]
     Active Substance: CLOPIDOGREL BISULFATE
     Indication: Antiplatelet therapy
  4. APIXABAN [Concomitant]
     Active Substance: APIXABAN
     Indication: Antiplatelet therapy

REACTIONS (1)
  - Neutropenia [Unknown]
